FAERS Safety Report 8513757-5 (Version None)
Quarter: 2012Q3

REPORT INFORMATION
  Report Type: 
  Country: None (occurrence: None)
  Receive Date: 20120705
  Receipt Date: 20120618
  Transmission Date: 20120928
  Serious: Yes (Hospitalization)
  Sender: FDA-Public Use
  Company Number: 2012S1004164

PATIENT
  Age: 79 Year
  Sex: Female
  Weight: 74.6 kg

DRUGS (15)
  1. LISINOPRIL [Concomitant]
  2. ACIDOPHILUS [Concomitant]
  3. PRILOSEC [Concomitant]
  4. DILTIAZEM [Concomitant]
  5. ASPIRIN [Concomitant]
  6. OXYBUTYNIN [Concomitant]
  7. VICODIN [Concomitant]
  8. MULTIVITAMIN/ 00097801/ [Concomitant]
  9. ZOCOR [Concomitant]
  10. SODIUM PHOSPHATES [Suspect]
     Indication: CONSTIPATION
     Dosage: RTL
     Route: 054
     Dates: start: 20100711, end: 20100711
  11. CONTRAST DYE [Suspect]
     Indication: CATHETERISATION CARDIAC
     Dates: start: 20100703, end: 20100703
  12. GLUCOSAMINE [Concomitant]
  13. SEACAL /03134601/ [Concomitant]
  14. LAXATIVE [Concomitant]
  15. CHONDROITIN [Concomitant]

REACTIONS (18)
  - CHEST DISCOMFORT [None]
  - VOMITING [None]
  - BRONCHIAL HYPERREACTIVITY [None]
  - RENAL FAILURE ACUTE [None]
  - COUGH [None]
  - ASTHENIA [None]
  - UPPER RESPIRATORY TRACT INFECTION [None]
  - MALAISE [None]
  - FEELING ABNORMAL [None]
  - DEHYDRATION [None]
  - DYSPNOEA [None]
  - CYSTITIS [None]
  - HAEMATOCHEZIA [None]
  - DIALYSIS [None]
  - OVERDOSE [None]
  - NAUSEA [None]
  - URINARY TRACT INFECTION [None]
  - HYPERTENSION [None]
